FAERS Safety Report 9177662 (Version 2)
Quarter: 2013Q2

REPORT INFORMATION
  Report Type: Spontaneous
  Country: US (occurrence: US)
  Receive Date: 20130321
  Receipt Date: 20130508
  Transmission Date: 20140414
  Serious: Yes (Other)
  Sender: FDA-Public Use
  Company Number: US-SHIRE-ALL1-2013-01562

PATIENT
  Age: 7 Year
  Sex: Male
  Weight: 44.9 kg

DRUGS (3)
  1. INTUNIV [Suspect]
     Indication: ATTENTION DEFICIT/HYPERACTIVITY DISORDER
     Dosage: 3 MG, 1X/DAY:QD
     Route: 048
     Dates: start: 20130207
  2. VYVANSE [Suspect]
     Indication: ATTENTION DEFICIT/HYPERACTIVITY DISORDER
     Dosage: 50 MG, 1X/DAY:QD
     Route: 048
     Dates: start: 20130207, end: 20130306
  3. VYVANSE [Suspect]
     Dosage: 30 MG, UNKNOWN
     Route: 048
     Dates: start: 20130415

REACTIONS (5)
  - Hallucination, visual [Recovered/Resolved]
  - Sleep disorder [Not Recovered/Not Resolved]
  - Fear [Unknown]
  - Inappropriate schedule of drug administration [Not Recovered/Not Resolved]
  - Initial insomnia [Not Recovered/Not Resolved]
